FAERS Safety Report 7596605-X (Version None)
Quarter: 2011Q3

REPORT INFORMATION
  Report Type: 
  Country: None (occurrence: None)
  Receive Date: 20110708
  Receipt Date: 20110627
  Transmission Date: 20111222
  Serious: Yes (Death, Hospitalization)
  Sender: FDA-Public Use
  Company Number: GB-JNJFOC-20110603204

PATIENT
  Sex: Female

DRUGS (3)
  1. ABIRATERONE ACETATE [Suspect]
     Dosage: CYCLE 1 DAY 1, FOR 28 DAYS
     Route: 048
     Dates: start: 20110330
  2. ABIRATERONE ACETATE [Suspect]
     Route: 048
     Dates: start: 20110609
  3. ABIRATERONE ACETATE [Suspect]
     Indication: BREAST CANCER METASTATIC
     Dosage: CYCLE 2, ON DAY 22
     Route: 048
     Dates: start: 20110519

REACTIONS (8)
  - LETHARGY [None]
  - DECREASED APPETITE [None]
  - JAUNDICE [None]
  - HYPOKALAEMIA [None]
  - DIARRHOEA [None]
  - VOMITING [None]
  - BREAST CANCER METASTATIC [None]
  - DISEASE PROGRESSION [None]
